FAERS Safety Report 9919451 (Version 1)
Quarter: 2014Q1

REPORT INFORMATION
  Report Type: Spontaneous
  Country: AU (occurrence: AU)
  Receive Date: 20140224
  Receipt Date: 20140224
  Transmission Date: 20141002
  Serious: Yes (Life-Threatening, Hospitalization, Other)
  Sender: FDA-Public Use
  Company Number: AU-JNJFOC-20140212086

PATIENT
  Sex: 0

DRUGS (4)
  1. INFLIXIMAB, RECOMBINANT [Suspect]
     Indication: INFLAMMATORY BOWEL DISEASE
     Route: 042
  2. LORATADINE [Concomitant]
     Indication: PREMEDICATION
     Route: 048
  3. PARACETAMOL [Concomitant]
     Indication: PREMEDICATION
     Route: 048
  4. HYDROCORTISONE [Concomitant]
     Indication: PREMEDICATION
     Route: 042

REACTIONS (23)
  - Tachycardia [Unknown]
  - Injection site ulcer [Unknown]
  - Injection site necrosis [Unknown]
  - Psoriasis [Unknown]
  - Chest pain [Unknown]
  - Angioedema [Unknown]
  - Urticaria [Unknown]
  - Hypotension [Unknown]
  - Nausea [Unknown]
  - Pyrexia [Unknown]
  - Infusion related reaction [Unknown]
  - Anaphylactic reaction [Unknown]
  - Bronchospasm [Unknown]
  - Serum sickness [Unknown]
  - Dyspnoea [Unknown]
  - Off label use [Unknown]
  - Rash [Unknown]
  - Pruritus [Unknown]
  - Arthralgia [Unknown]
  - Rash erythematous [Unknown]
  - Injection site pain [Unknown]
  - Injection site pruritus [Unknown]
  - Injection site erythema [Unknown]
